FAERS Safety Report 7788335-6 (Version None)
Quarter: 2011Q3

REPORT INFORMATION
  Report Type: 
  Country: None (occurrence: None)
  Receive Date: 20110929
  Receipt Date: 20110929
  Transmission Date: 20111222
  Serious: No
  Sender: FDA-Public Use
  Company Number: None

PATIENT
  Age: 79 Year
  Sex: Male
  Weight: 90.7194 kg

DRUGS (1)
  1. PRADAXA [Suspect]
     Indication: ANTICOAGULANT THERAPY
     Dosage: 150 MG TWICE MOUTH
     Route: 048

REACTIONS (5)
  - INSOMNIA [None]
  - DIZZINESS [None]
  - BLOOD URINE PRESENT [None]
  - SKIN DISCOLOURATION [None]
  - FEEDING DISORDER [None]
